FAERS Safety Report 9052908 (Version 1)
Quarter: 2013Q1

REPORT INFORMATION
  Report Type: Spontaneous
  Country: US (occurrence: US)
  Receive Date: 20130207
  Receipt Date: 20130207
  Transmission Date: 20140127
  Serious: Yes (Hospitalization)
  Sender: FDA-Public Use
  Company Number: US-SANOFI-AVENTIS-2013SA011130

PATIENT
  Age: 22 Year
  Sex: Female

DRUGS (2)
  1. LOVENOX [Suspect]
     Indication: THROMBOSIS PROPHYLAXIS
     Dosage: Q 12 IS FREQUENCY
  2. ZOFRAN [Concomitant]
     Indication: HYPEREMESIS GRAVIDARUM

REACTIONS (3)
  - Injection site abscess [Not Recovered/Not Resolved]
  - Exposure during pregnancy [Unknown]
  - Drug administered at inappropriate site [Unknown]
